APPROVED DRUG PRODUCT: COLESTIPOL HYDROCHLORIDE
Active Ingredient: COLESTIPOL HYDROCHLORIDE
Strength: 1GM
Dosage Form/Route: TABLET;ORAL
Application: A077510 | Product #001 | TE Code: AB
Applicant: IMPAX LABORATORIES INC
Approved: Oct 24, 2006 | RLD: No | RS: Yes | Type: RX